FAERS Safety Report 16202648 (Version 1)
Quarter: 2019Q2

REPORT INFORMATION
  Report Type: Spontaneous
  Country: US (occurrence: US)
  Receive Date: 20190313
  Receipt Date: 20190313
  Transmission Date: 20190711
  Serious: Yes (Hospitalization)
  Sender: FDA-Public Use
  Company Number: None

PATIENT
  Sex: Male

DRUGS (9)
  1. SLO-NIACIN [Concomitant]
     Active Substance: NIACIN
  2. AMLODIPINE [Concomitant]
     Active Substance: AMLODIPINE BESYLATE
  3. VITAMNIN D3 [Concomitant]
  4. LANSOPRAZOLE. [Concomitant]
     Active Substance: LANSOPRAZOLE
  5. ASPIRIN. [Concomitant]
     Active Substance: ASPIRIN
  6. ADVIL [Concomitant]
     Active Substance: IBUPROFEN
  7. TYLENOL [Concomitant]
     Active Substance: ACETAMINOPHEN
  8. HUMIRA [Suspect]
     Active Substance: ADALIMUMAB
     Indication: CROHN^S DISEASE
     Route: 058
     Dates: start: 20170830
  9. DOXATOSIN [Concomitant]

REACTIONS (1)
  - Gastric bypass [None]
